FAERS Safety Report 11140058 (Version 3)
Quarter: 2016Q1

REPORT INFORMATION
  Report Type: Report from Study
  Country: DE (occurrence: CO)
  Receive Date: 20150527
  Receipt Date: 20160216
  Transmission Date: 20160525
  Serious: Yes (Hospitalization, Other)
  Sender: FDA-Public Use
  Company Number: DE-ACTELION-A-US2015-118518

PATIENT
  Age: 18 Year
  Sex: Female

DRUGS (4)
  1. BOSENTAN [Concomitant]
     Active Substance: BOSENTAN
     Dosage: UNK
  2. ASPIRINA [Concomitant]
     Active Substance: ASPIRIN
     Dosage: UNK
  3. VENTAVIS [Suspect]
     Active Substance: ILOPROST
     Indication: PULMONARY HYPERTENSION
     Dosage: 10 MCG, 3-4 TIMES A DAY
     Route: 055
     Dates: start: 20150313, end: 20150518
  4. SILDENAFIL. [Concomitant]
     Active Substance: SILDENAFIL
     Dosage: UNK

REACTIONS (6)
  - Loss of consciousness [Unknown]
  - Cough [Unknown]
  - Cardiac arrest [Unknown]
  - Pulmonary hypertension [Unknown]
  - Product use issue [Not Recovered/Not Resolved]
  - Cardiac disorder [Not Recovered/Not Resolved]

NARRATIVE: CASE EVENT DATE: 20150313
